FAERS Safety Report 8113493-3 (Version None)
Quarter: 2011Q4

REPORT INFORMATION
  Report Type: 
  Country: None (occurrence: None)
  Receive Date: 20111227
  Receipt Date: 20111101
  Transmission Date: 20120403
  Serious: Yes (Other)
  Sender: FDA-Public Use
  Company Number: PHEH2011US08476

PATIENT
  Age: 52 Year
  Sex: Female
  Weight: 99.8 kg

DRUGS (21)
  1. IBUPROFEN [Concomitant]
  2. PRAMIPEXOLE DIHYDROCHLORIDE [Concomitant]
  3. VITAMIN D [Concomitant]
  4. SYNTHROID [Concomitant]
  5. ARTIFICIAL TEARS (HYPROMELLOSE) [Concomitant]
  6. BACLOFEN [Concomitant]
  7. PROPRANOLOL [Concomitant]
  8. DONEPEZIL HCL [Concomitant]
  9. GABAPENTNI (GABAPENTIN) [Concomitant]
  10. CITALOPRAM HYDROBROMIDE [Concomitant]
  11. VITAMIN B12 [Concomitant]
  12. PROVIGIL [Concomitant]
  13. GILENYA [Suspect]
     Dosage: 0.5 MG, QD, ORAL
     Route: 048
  14. RELPAX [Concomitant]
  15. LAMOTRIGINE [Concomitant]
  16. FOSAMAX [Concomitant]
  17. NASONEX [Concomitant]
  18. OMEPRAZOLE [Concomitant]
  19. IRON (IRON) [Concomitant]
  20. CALCIUM CARBONATE [Concomitant]
  21. ZYRTEC [Concomitant]

REACTIONS (2)
  - BRONCHITIS [None]
  - INFLUENZA [None]
